FAERS Safety Report 7218208-9 (Version None)
Quarter: 2011Q1

REPORT INFORMATION
  Report Type: 
  Country: None (occurrence: None)
  Receive Date: 20110110
  Receipt Date: 20080211
  Transmission Date: 20110831
  Serious: Yes (Hospitalization)
  Sender: FDA-Public Use
  Company Number: PHRM2008FR00798

PATIENT
  Sex: Male

DRUGS (5)
  1. CELECTOL [Concomitant]
  2. TAREG [Suspect]
     Indication: HYPERTENSION
     Route: 048
     Dates: end: 20070403
  3. ISOPTIN [Suspect]
     Indication: ARRHYTHMIA
     Route: 048
     Dates: start: 20070301, end: 20070403
  4. AMIODARONE [Suspect]
     Indication: ARRHYTHMIA
     Route: 048
     Dates: start: 20070305, end: 20070315
  5. FLUDEX [Suspect]
     Indication: HYPERTENSION
     Dosage: 1.5 MG, QD
     Route: 048
     Dates: end: 20070403

REACTIONS (4)
  - HYPOTENSION [None]
  - BRADYCARDIA [None]
  - FALL [None]
  - CARDIOGENIC SHOCK [None]
